FAERS Safety Report 9620774 (Version 1)
Quarter: 2013Q4

REPORT INFORMATION
  Report Type: Spontaneous
  Country: IT (occurrence: IT)
  Receive Date: 20131015
  Receipt Date: 20131015
  Transmission Date: 20140711
  Serious: Yes (Death, Other)
  Sender: FDA-Public Use
  Company Number: IT-JNJFOC-20131006790

PATIENT
  Sex: 0

DRUGS (1)
  1. CALCIUM CARBONATE [Suspect]
     Indication: HYPERPHOSPHATAEMIA
     Route: 065

REACTIONS (2)
  - Sinus arrest [Fatal]
  - Off label use [Unknown]
